FAERS Safety Report 25711503 (Version 2)
Quarter: 2025Q3

REPORT INFORMATION
  Report Type: Spontaneous
  Country: US (occurrence: US)
  Receive Date: 20250821
  Receipt Date: 20250925
  Transmission Date: 20251021
  Serious: Yes (Other)
  Sender: TERSERA THERAPEUTICS
  Company Number: US-TERSERA THERAPEUTICS LLC-2025TRS003147

PATIENT

DRUGS (3)
  1. PRIALT [Suspect]
     Active Substance: ZICONOTIDE ACETATE
     Indication: Spinal pain
     Route: 037
  2. FENTANYL [Concomitant]
     Active Substance: FENTANYL
     Indication: Product used for unknown indication
     Route: 065
  3. DILAUDID [Concomitant]
     Active Substance: HYDROMORPHONE HYDROCHLORIDE
     Indication: Product used for unknown indication
     Route: 065

REACTIONS (10)
  - Cerebrospinal fluid leakage [Unknown]
  - Post lumbar puncture syndrome [Unknown]
  - Blood pressure increased [Unknown]
  - Dyspnoea [Unknown]
  - Nerve injury [Unknown]
  - Pain [Unknown]
  - Vomiting [Unknown]
  - Dysuria [Unknown]
  - Overdose [Unknown]
  - No adverse event [Unknown]
